FAERS Safety Report 21578651 (Version 3)
Quarter: 2022Q4

REPORT INFORMATION
  Report Type: Spontaneous
  Country: US (occurrence: US)
  Receive Date: 20221110
  Receipt Date: 20221207
  Transmission Date: 20230113
  Serious: Yes (Other)
  Sender: FDA-Public Use
  Company Number: US-BRISTOL-MYERS SQUIBB COMPANY-2022-135072

PATIENT
  Age: 61 Year
  Sex: Male

DRUGS (3)
  1. ONUREG [Suspect]
     Active Substance: AZACITIDINE
     Indication: Acute myeloid leukaemia
     Dosage: FREQ : ^14/28 DAYS^ AND ^QD ON DAYS 1-14 OF EACH 28-DAY TREATMENT CYCLE
     Route: 048
     Dates: start: 202207
  2. ONUREG [Suspect]
     Active Substance: AZACITIDINE
     Dosage: FREQ : ^14/28 DAYS^ AND ^QD ON DAYS 1-14 OF EACH 28-DAY TREATMENT CYCLE
     Route: 048
     Dates: start: 202207
  3. ZOFRAN [Concomitant]
     Active Substance: ONDANSETRON HYDROCHLORIDE
     Indication: Product used for unknown indication
     Route: 065

REACTIONS (3)
  - Cytopenia [Unknown]
  - Nausea [Unknown]
  - Leukaemia recurrent [Unknown]
